FAERS Safety Report 6262579-7 (Version None)
Quarter: 2009Q3

REPORT INFORMATION
  Report Type: 
  Country: None (occurrence: None)
  Receive Date: 20090709
  Receipt Date: 20090701
  Transmission Date: 20100115
  Serious: Yes (Disabling)
  Sender: FDA-Public Use
  Company Number: US-ELI_LILLY_AND_COMPANY-US200907000335

PATIENT
  Sex: Male

DRUGS (16)
  1. HUMULIN N [Suspect]
     Indication: TYPE 2 DIABETES MELLITUS
     Dosage: UNK, 2/D
     Dates: start: 20040101
  2. GLYBURIDE [Concomitant]
  3. NOVOLOG [Concomitant]
     Indication: TYPE 2 DIABETES MELLITUS
     Dosage: 40 U, 3/D
     Dates: start: 20040101
  4. FLUOXETINE HCL [Concomitant]
  5. AMITRIPTYLINE HCL [Concomitant]
  6. CHLORDIAZEPOXIDE [Concomitant]
  7. WARFARIN SODIUM [Concomitant]
  8. HYDRALAZINE HCL [Concomitant]
  9. METOPROLOL [Concomitant]
  10. ISOSORBIDE [Concomitant]
  11. FUROSEMIDE [Concomitant]
  12. METOLAZONE [Concomitant]
  13. CRESTOR [Concomitant]
  14. FENOFIBRATE [Concomitant]
  15. KLOR-CON [Concomitant]
  16. SPIRONOLACTONE [Concomitant]

REACTIONS (3)
  - ABASIA [None]
  - CARDIAC FAILURE CONGESTIVE [None]
  - RENAL FUNCTION TEST ABNORMAL [None]
